FAERS Safety Report 6708385-8 (Version None)
Quarter: 2010Q2

REPORT INFORMATION
  Report Type: 
  Country: None (occurrence: None)
  Receive Date: 20100503
  Receipt Date: 20090415
  Transmission Date: 20101027
  Serious: No
  Sender: FDA-Public Use
  Company Number: US-ASTRAZENECA-2009UW09502

PATIENT
  Age: 74 Year
  Sex: Female
  Weight: 62.1 kg

DRUGS (5)
  1. NEXIUM [Suspect]
     Indication: GASTROOESOPHAGEAL REFLUX DISEASE
     Route: 048
  2. CELEBREX [Concomitant]
  3. RANEXA [Concomitant]
  4. NADOLOL [Concomitant]
  5. ACTONEL [Concomitant]

REACTIONS (2)
  - COUGH [None]
  - PRODUCT QUALITY ISSUE [None]
